FAERS Safety Report 23817833 (Version 1)
Quarter: 2024Q2

REPORT INFORMATION
  Report Type: Spontaneous
  Country: EG (occurrence: EG)
  Receive Date: 20240506
  Receipt Date: 20240506
  Transmission Date: 20240715
  Serious: Yes (Hospitalization, Other)
  Sender: FDA-Public Use
  Company Number: EG-NOVOPROD-1211814

PATIENT
  Sex: Female
  Weight: 105 kg

DRUGS (8)
  1. INSULIN HUMAN [Suspect]
     Active Substance: INSULIN HUMAN
     Dosage: 20 U/MORNING AND 20 U/NIGHT (SOMETIMES)
     Route: 058
  2. INSULIN HUMAN [Suspect]
     Active Substance: INSULIN HUMAN
     Dosage: 20 IU
     Route: 058
  3. INSULIN HUMAN [Suspect]
     Active Substance: INSULIN HUMAN
     Indication: Type 2 diabetes mellitus
     Dosage: 20-30 IU/MORNING AND 20-15 IU/NIGHT OR LESS THAN 15 IU BY ONE 1 OR 2 IU/NIGHT
     Route: 058
  4. BISOPROLOL FUMARATE [Concomitant]
     Active Substance: BISOPROLOL FUMARATE
     Indication: Hypertension
     Dosage: 1 TAB/NIGHT
     Route: 048
  5. ERASTAPEX TRIO [Concomitant]
     Indication: Hypertension
     Dosage: 1 TAB/DAY BEFORE MEAL
     Route: 048
  6. THIOTACID COMPOUND [Concomitant]
     Indication: Prophylaxis
     Dosage: 1 TAB/DAY
     Route: 048
  7. CALCIUM [Concomitant]
     Active Substance: CALCIUM
     Dosage: 1 TAB/DAY
     Route: 048
  8. VITAMIN B [Concomitant]
     Active Substance: VITAMIN B
     Dosage: (TWICE WEEKLY)

REACTIONS (5)
  - Fall [Unknown]
  - Hand fracture [Not Recovered/Not Resolved]
  - Hernia [Recovered/Resolved]
  - Abscess [Recovered/Resolved]
  - Hyperglycaemia [Recovered/Resolved]
